FAERS Safety Report 18254263 (Version 2)
Quarter: 2020Q4

REPORT INFORMATION
  Report Type: Other
  Country: US (occurrence: US)
  Receive Date: 20200911
  Receipt Date: 20201014
  Transmission Date: 20210113
  Serious: Yes (Other)
  Sender: FDA-Public Use
  Company Number: US-INTERCEPT-PM2020000841

PATIENT
  Age: 65 Year
  Sex: Female

DRUGS (1)
  1. OCALIVA [Suspect]
     Active Substance: OBETICHOLIC ACID
     Indication: PRIMARY BILIARY CHOLANGITIS
     Dosage: 5 MG, QD
     Route: 048
     Dates: start: 20200304

REACTIONS (4)
  - Drug ineffective [Unknown]
  - Osteitis deformans [Unknown]
  - Pruritus [Not Recovered/Not Resolved]
  - Exfoliative rash [Unknown]

NARRATIVE: CASE EVENT DATE: 2020
